FAERS Safety Report 18500575 (Version 1)
Quarter: 2020Q4

REPORT INFORMATION
  Report Type: Spontaneous
  Country: US (occurrence: US)
  Receive Date: 20201112
  Receipt Date: 20201112
  Transmission Date: 20210114
  Serious: Yes (Hospitalization)
  Sender: FDA-Public Use
  Company Number: None

PATIENT
  Age: 76 Year
  Sex: Female
  Weight: 80.7 kg

DRUGS (1)
  1. APIXIBAN [Suspect]
     Active Substance: APIXABAN
     Indication: THROMBOSIS PROPHYLAXIS
     Route: 048

REACTIONS (7)
  - Peritoneal dialysis [None]
  - Small intestinal obstruction [None]
  - Impaired gastric emptying [None]
  - Mallory-Weiss syndrome [None]
  - Blood loss anaemia [None]
  - Packed red blood cell transfusion [None]
  - Haematemesis [None]

NARRATIVE: CASE EVENT DATE: 20201025
